FAERS Safety Report 8285082-1 (Version None)
Quarter: 2012Q2

REPORT INFORMATION
  Report Type: 
  Country: None (occurrence: None)
  Receive Date: 20120413
  Receipt Date: 20120103
  Transmission Date: 20120825
  Serious: No
  Sender: FDA-Public Use
  Company Number: US-ASTRAZENECA-2012SE00619

PATIENT
  Sex: Female

DRUGS (3)
  1. AMLODIPINE [Concomitant]
  2. LIPITOR [Concomitant]
  3. NEXIUM [Suspect]
     Route: 048

REACTIONS (6)
  - GASTROOESOPHAGEAL REFLUX DISEASE [None]
  - DIZZINESS [None]
  - ABDOMINAL DISTENSION [None]
  - HEART RATE DECREASED [None]
  - DYSPEPSIA [None]
  - FLATULENCE [None]
